FAERS Safety Report 7498943-8 (Version None)
Quarter: 2011Q2

REPORT INFORMATION
  Report Type: 
  Country: None (occurrence: None)
  Receive Date: 20110524
  Receipt Date: 20110509
  Transmission Date: 20111010
  Serious: Yes (Hospitalization)
  Sender: FDA-Public Use
  Company Number: ES-CELGENEUS-144-50794-11051052

PATIENT
  Age: 67 Year
  Sex: Female

DRUGS (3)
  1. VIDAZA [Suspect]
     Dosage: 3/4 75MG/M2
     Route: 058
  2. VIDAZA [Suspect]
     Dosage: 2/3 OF 75MG/M2
     Route: 058
     Dates: start: 20081101
  3. VIDAZA [Suspect]
     Dosage: 3/4 75MG/M2
     Route: 058
     Dates: start: 20110201

REACTIONS (2)
  - DIABETIC FOOT INFECTION [None]
  - SKIN ULCER [None]
